FAERS Safety Report 5192114-6 (Version None)
Quarter: 2006Q4

REPORT INFORMATION
  Report Type: 
  Country: None (occurrence: None)
  Receive Date: 20061220
  Receipt Date: 20061218
  Transmission Date: 20070319
  Serious: Yes (Hospitalization)
  Sender: FDA-Public Use
  Company Number: 226595

PATIENT
  Age: 50 Year
  Sex: Male
  Weight: 57 kg

DRUGS (10)
  1. AVASTIN [Suspect]
     Indication: COLORECTAL CANCER
     Dosage: 279 MG, Q2W, INTRAVENOUS
     Route: 042
     Dates: start: 20060509
  2. OXALIPLATIN [Suspect]
     Indication: COLORECTAL CANCER
     Dosage: 139 MG, Q2W, INTRAVENOUS
     Route: 042
     Dates: start: 20060509
  3. LEVOLEUCOVORIN CALCIUM (LEVOLEUCOVORIN CALCIUM) [Suspect]
     Indication: COLORECTAL CANCER
     Dosage: 164 MG, Q2W, INTRAVENOUS
     Route: 042
  4. FLUOROURACIL [Suspect]
     Indication: COLORECTAL CANCER
     Dosage: 1637 MG, Q2W, INTRAVENOUS
     Route: 042
  5. LACTOBACILLUS BIFIDUS (BIFIDOBACTERIUM) [Concomitant]
  6. MAGNESIUM OXIDE [Concomitant]
  7. CLONAZEPAM [Concomitant]
  8. BETAMETHASONE [Concomitant]
  9. CHLORHEXIDINE (CHLORHEXIDINE GLUCONATE) [Concomitant]
  10. ALLOPURINOL [Concomitant]

REACTIONS (2)
  - ANOREXIA [None]
  - GASTROENTERITIS [None]
